FAERS Safety Report 9193264 (Version 3)
Quarter: 2013Q2

REPORT INFORMATION
  Report Type: Spontaneous
  Country: LU (occurrence: LU)
  Receive Date: 20130327
  Receipt Date: 20130424
  Transmission Date: 20140414
  Serious: Yes (Hospitalization, Other)
  Sender: FDA-Public Use
  Company Number: LU-ASTRAZENECA-2013SE19878

PATIENT
  Age: 24243 Day
  Sex: Female

DRUGS (29)
  1. BRILLIQUE [Suspect]
     Indication: INFARCTION
     Route: 048
     Dates: start: 201301, end: 201301
  2. BRILLIQUE [Suspect]
     Indication: ACUTE MYOCARDIAL INFARCTION
     Route: 048
     Dates: start: 201301, end: 201301
  3. BRILLIQUE [Suspect]
     Indication: INFARCTION
     Route: 048
     Dates: start: 201301, end: 201303
  4. BRILLIQUE [Suspect]
     Indication: ACUTE MYOCARDIAL INFARCTION
     Route: 048
     Dates: start: 201301, end: 201303
  5. LIPITOR [Concomitant]
  6. LIPITOR [Concomitant]
  7. ASAFLOW [Concomitant]
  8. ASAFLOW [Concomitant]
     Dosage: ASA
     Dates: start: 201111
  9. EMCONCOR [Concomitant]
  10. EMCONCOR [Concomitant]
     Dosage: TWO TIMES HALF TABLET EACH MORNING
  11. CORDARONE [Concomitant]
     Indication: CARDIAC FIBRILLATION
  12. LAXIDO [Concomitant]
     Dosage: 1 BAG INTERMITTENT
  13. L-THYROXINE [Concomitant]
  14. L-THYROXINE [Concomitant]
  15. NEORECORMON [Concomitant]
     Dosage: 30000 UNITS INJECTION, 1 INJECTION EACH 7 DAYS
     Route: 058
     Dates: start: 20130312
  16. NEXIAM [Concomitant]
  17. NEXIAM [Concomitant]
  18. XANAX [Concomitant]
  19. XANAX [Concomitant]
  20. ZOLPIDEM [Concomitant]
  21. SPIRONOLACTONE [Concomitant]
     Dates: end: 201303
  22. INEGY [Concomitant]
     Dosage: 10/40 MG 98 TABLETS, 0-0-1
  23. STATIN TREATMENT [Concomitant]
     Dosage: REQUIRED FOR LIFETIME
  24. ASPEGIC [Concomitant]
     Dosage: 100 MG BAG 1 BAG DAILY
  25. LASIX [Concomitant]
  26. CLEXANE [Concomitant]
     Route: 058
  27. CARBOPLATINE [Concomitant]
     Indication: OVARIAN NEOPLASM
     Dates: end: 2012
  28. COZAAR [Concomitant]
     Dates: end: 201301
  29. COZAAR [Concomitant]
     Dosage: 100 MG 28 TABLETS, 1 TABLET P.D.

REACTIONS (9)
  - Renal failure [Recovered/Resolved]
  - Renal failure acute [Recovered/Resolved]
  - Thrombocytopenia [Recovered/Resolved]
  - Haemoglobin decreased [Unknown]
  - Asthenia [Unknown]
  - Anaemia [Unknown]
  - Systemic inflammatory response syndrome [Unknown]
  - Dehydration [Unknown]
  - Dyspnoea [Unknown]
